FAERS Safety Report 6114913-6 (Version None)
Quarter: 2009Q1

REPORT INFORMATION
  Report Type: 
  Country: None (occurrence: None)
  Receive Date: 20090313
  Receipt Date: 20090306
  Transmission Date: 20090719
  Serious: Yes (Other)
  Sender: FDA-Public Use
  Company Number: PHEH2009US02386

PATIENT
  Sex: Female

DRUGS (3)
  1. EXFORGE [Suspect]
     Dosage: 10/160 MG, QD
     Route: 048
     Dates: start: 20090214, end: 20090227
  2. ASPIRIN [Concomitant]
  3. FOLIC ACID [Concomitant]

REACTIONS (5)
  - BLOOD PRESSURE DECREASED [None]
  - EPISTAXIS [None]
  - OEDEMA PERIPHERAL [None]
  - PAIN IN EXTREMITY [None]
  - WEIGHT INCREASED [None]
